FAERS Safety Report 12243928 (Version 2)
Quarter: 2016Q2

REPORT INFORMATION
  Report Type: Spontaneous
  Country: BR (occurrence: BR)
  Receive Date: 20160406
  Receipt Date: 20160407
  Transmission Date: 20160815
  Serious: Yes (Disabling, Other)
  Sender: FDA-Public Use
  Company Number: BR-ELI_LILLY_AND_COMPANY-BR201603011133

PATIENT
  Sex: Female
  Weight: 67 kg

DRUGS (13)
  1. ALOPURINOL [Concomitant]
     Active Substance: ALLOPURINOL
     Indication: RENAL DISORDER
     Dosage: 300 MG, UNK
     Route: 065
  2. HUMULIN N [Suspect]
     Active Substance: INSULIN HUMAN
     Dosage: 14 IU, EACH EVENING
     Route: 058
     Dates: start: 1996
  3. GLIFAGE [Concomitant]
     Active Substance: METFORMIN HYDROCHLORIDE
     Dosage: 1000 MG, EACH EVENING
     Route: 065
  4. HUMULIN N [Suspect]
     Active Substance: INSULIN HUMAN
     Indication: TYPE 2 DIABETES MELLITUS
     Dosage: 14 IU, EACH MORNING
     Route: 058
     Dates: start: 1996
  5. DIOVAN [Concomitant]
     Active Substance: VALSARTAN
     Indication: HYPERTENSION
     Dosage: 320 MG, EACH MORNING
     Route: 065
  6. IVABRADINA [Concomitant]
     Indication: CARDIAC DISORDER
     Dosage: 5 MG, EVERY 12H
     Route: 065
  7. CLONAZEPAM. [Concomitant]
     Active Substance: CLONAZEPAM
     Indication: SLEEP DISORDER
     Dosage: 1 MG, QD
     Route: 065
  8. NEBILET [Concomitant]
     Active Substance: NEBIVOLOL
     Indication: CARDIAC DISORDER
     Dosage: 5 MG, EACH MORNING
     Route: 065
  9. INDAPAMIDE. [Concomitant]
     Active Substance: INDAPAMIDE
     Indication: CARDIAC DISORDER
     Dosage: 1.5 MG, UNKNOWN
     Route: 065
  10. SOMALGIN CARDIO [Concomitant]
     Active Substance: ASPIRIN\DIHYDROXYALUMINUM AMINOACETATE ANHYDROUS\MAGNESIUM CARBONATE
     Indication: ANTICOAGULANT THERAPY
     Dosage: 100 MG, UNKNOWN
     Route: 065
  11. CLOPIDOGREL [Concomitant]
     Active Substance: CLOPIDOGREL BISULFATE
     Indication: CARDIAC DISORDER
     Dosage: 75 MG, QD
     Route: 065
  12. LIPISTAT                           /01326102/ [Concomitant]
     Indication: BLOOD CHOLESTEROL
     Dosage: 10 MG, EACH EVENING
     Route: 065
  13. ESPIRONOLACTONA [Concomitant]
     Active Substance: SPIRONOLACTONE
     Indication: BLOOD PRESSURE MEASUREMENT
     Dosage: 50 MG, QD
     Route: 065

REACTIONS (10)
  - Lacrimation increased [Unknown]
  - Blindness unilateral [Unknown]
  - Incorrect dose administered [Unknown]
  - Glaucoma [Recovered/Resolved]
  - Drug dose omission [Unknown]
  - Eye haemorrhage [Recovering/Resolving]
  - Retinopathy [Unknown]
  - Cataract [Unknown]
  - Hypoaesthesia [Not Recovered/Not Resolved]
  - Visual acuity reduced [Unknown]
